FAERS Safety Report 18377678 (Version 3)
Quarter: 2020Q4

REPORT INFORMATION
  Report Type: Spontaneous
  Country: US (occurrence: US)
  Receive Date: 20201013
  Receipt Date: 20201230
  Transmission Date: 20210114
  Serious: Yes (Other)
  Sender: FDA-Public Use
  Company Number: US-VYERA PHARMACEUTICALS, LLC-2020VYE00040

PATIENT
  Age: 53 Year
  Sex: Male
  Weight: 85.71 kg

DRUGS (8)
  1. CETIRIZINE [Concomitant]
     Active Substance: CETIRIZINE HYDROCHLORIDE
  2. DARAPRIM [Suspect]
     Active Substance: PYRIMETHAMINE
     Indication: TOXOPLASMOSIS
     Dosage: 75 MG, 1X/DAY
     Route: 048
     Dates: start: 20200716
  3. SULFADIAZINE. [Suspect]
     Active Substance: SULFADIAZINE
     Dosage: UNK
     Dates: start: 202008, end: 202009
  4. MEPRON [Suspect]
     Active Substance: ATOVAQUONE
     Indication: ILL-DEFINED DISORDER
     Dosage: UNK, 2X/DAY, 9 AM AND 1:00 AM
     Dates: start: 2020
  5. OMEPRAZOLE. [Concomitant]
     Active Substance: OMEPRAZOLE
  6. VALTREX [Concomitant]
     Active Substance: VALACYCLOVIR HYDROCHLORIDE
  7. LEUCOVOR [Concomitant]
     Dosage: 25 MG, 1X/DAY
  8. BIKTARVY [Concomitant]
     Active Substance: BICTEGRAVIR SODIUM\EMTRICITABINE\TENOFOVIR ALAFENAMIDE FUMARATE

REACTIONS (33)
  - Polyuria [Recovering/Resolving]
  - Tremor [Unknown]
  - Headache [Recovering/Resolving]
  - Rash pruritic [Recovering/Resolving]
  - Abdominal discomfort [Unknown]
  - Chest pain [Recovered/Resolved]
  - Dyspnoea [Recovering/Resolving]
  - Urine odour abnormal [Unknown]
  - Polydipsia [Not Recovered/Not Resolved]
  - Chest discomfort [Recovering/Resolving]
  - Hypophagia [Recovering/Resolving]
  - Chromaturia [Unknown]
  - Gastrointestinal sounds abnormal [Unknown]
  - Eructation [Not Recovered/Not Resolved]
  - Dizziness [Recovering/Resolving]
  - Off label use [Not Recovered/Not Resolved]
  - Flatulence [Not Recovered/Not Resolved]
  - Unevaluable event [Unknown]
  - Throat tightness [Recovering/Resolving]
  - Stress [Not Recovered/Not Resolved]
  - Throat irritation [Not Recovered/Not Resolved]
  - Product dose omission issue [Unknown]
  - Hypersensitivity [Unknown]
  - Oropharyngeal discomfort [Unknown]
  - Abnormal sensation in eye [Not Recovered/Not Resolved]
  - Diarrhoea [Unknown]
  - Tenderness [Recovering/Resolving]
  - Eye irritation [Not Recovered/Not Resolved]
  - Gingival discomfort [Recovering/Resolving]
  - Rash [Recovering/Resolving]
  - Anxiety [Not Recovered/Not Resolved]
  - Faeces soft [Not Recovered/Not Resolved]
  - Vomiting [Not Recovered/Not Resolved]

NARRATIVE: CASE EVENT DATE: 2020
